FAERS Safety Report 16351886 (Version 1)
Quarter: 2019Q2

REPORT INFORMATION
  Report Type: Spontaneous
  Country: US (occurrence: US)
  Receive Date: 20190524
  Receipt Date: 20190524
  Transmission Date: 20190711
  Serious: No
  Sender: FDA-Public Use
  Company Number: US-NOVEN PHARMACEUTICALS, INC.-US2018000567

PATIENT

DRUGS (4)
  1. DAYTRANA [Suspect]
     Active Substance: METHYLPHENIDATE
     Indication: ATTENTION DEFICIT/HYPERACTIVITY DISORDER
     Dosage: 10 MG, UNKNOWN
     Route: 062
     Dates: end: 20180915
  2. TRAZODONE [Concomitant]
     Active Substance: TRAZODONE HYDROCHLORIDE
     Dosage: AT NIGHT
  3. QUINIDINE [Concomitant]
     Active Substance: QUINIDINE
  4. BENADRYL [Concomitant]
     Active Substance: DIPHENHYDRAMINE HYDROCHLORIDE
     Dosage: AT NIGHT

REACTIONS (8)
  - Patient restraint [Unknown]
  - Anxiety [Unknown]
  - Drug ineffective [Unknown]
  - Fear [Unknown]
  - Product quality issue [Unknown]
  - Paranoia [Unknown]
  - Product dose omission [Not Recovered/Not Resolved]
  - Impulsive behaviour [Unknown]

NARRATIVE: CASE EVENT DATE: 201809
